FAERS Safety Report 9914344 (Version 1)
Quarter: 2014Q1

REPORT INFORMATION
  Report Type: Spontaneous
  Country: US (occurrence: US)
  Receive Date: 20140220
  Receipt Date: 20140220
  Transmission Date: 20141002
  Serious: Yes (Hospitalization, Other)
  Sender: FDA-Public Use
  Company Number: US-PFIZER INC-2014046965

PATIENT
  Age: 66 Year
  Sex: Female
  Weight: 56.24 kg

DRUGS (2)
  1. EFFEXOR [Suspect]
     Indication: DEPRESSION
     Dosage: 150 MG, UNK
  2. SIMVASTATIN [Concomitant]
     Indication: BLOOD CHOLESTEROL INCREASED
     Dosage: 40 MG, 1X/DAY

REACTIONS (6)
  - Infection [Unknown]
  - Malaise [Unknown]
  - Immune system disorder [Unknown]
  - Pyrexia [Unknown]
  - Breast cancer female [Unknown]
  - Large intestine perforation [Unknown]
